FAERS Safety Report 13894253 (Version 1)
Quarter: 2017Q3

REPORT INFORMATION
  Report Type: Spontaneous
  Country: GB (occurrence: GB)
  Receive Date: 20170822
  Receipt Date: 20170822
  Transmission Date: 20171127
  Serious: Yes (Disabling, Other)
  Sender: FDA-Public Use
  Company Number: GB-MYLANLABS-2017M1050899

PATIENT

DRUGS (8)
  1. LITHIUM. [Concomitant]
     Active Substance: LITHIUM
  2. PREGABALIN. [Concomitant]
     Active Substance: PREGABALIN
  3. PROPRANOLOL [Concomitant]
     Active Substance: PROPRANOLOL HYDROCHLORIDE
  4. CITALOPRAM [Suspect]
     Active Substance: CITALOPRAM HYDROBROMIDE
     Indication: DEPRESSION
     Dosage: 10 MG, UNK
     Route: 048
     Dates: start: 20111210, end: 20120125
  5. CITALOPRAM [Suspect]
     Active Substance: CITALOPRAM HYDROBROMIDE
     Dosage: UNK
     Dates: start: 2013
  6. MIRTAZAPINE. [Concomitant]
     Active Substance: MIRTAZAPINE
  7. FLUOXETINE [Concomitant]
     Active Substance: FLUOXETINE HYDROCHLORIDE
     Indication: OBSESSIVE-COMPULSIVE DISORDER
  8. N-ACETYLCYSTEINE [Concomitant]
     Active Substance: ACETYLCYSTEINE

REACTIONS (14)
  - Condition aggravated [Unknown]
  - Amnesia [Not Recovered/Not Resolved]
  - Cognitive disorder [Recovering/Resolving]
  - Fear [Not Recovered/Not Resolved]
  - Visual snow syndrome [Recovering/Resolving]
  - Agitation [Unknown]
  - Hypersensitivity [Not Recovered/Not Resolved]
  - Intrusive thoughts [Unknown]
  - Withdrawal syndrome [Unknown]
  - Dysphoria [Unknown]
  - Bruxism [Unknown]
  - Panic disorder [Unknown]
  - Disturbance in attention [Not Recovered/Not Resolved]
  - Akathisia [Recovering/Resolving]

NARRATIVE: CASE EVENT DATE: 201203
